FAERS Safety Report 7890683-6 (Version None)
Quarter: 2011Q4

REPORT INFORMATION
  Report Type: 
  Country: None (occurrence: None)
  Receive Date: 20111103
  Receipt Date: 20110725
  Transmission Date: 20120403
  Serious: No
  Sender: FDA-Public Use
  Company Number: US-AMGEN-USASP2011037563

PATIENT
  Age: 56 Year
  Sex: Female
  Weight: 111 kg

DRUGS (9)
  1. DIOVAN [Concomitant]
     Dosage: 80 MG, UNK
  2. FOLIC ACID [Concomitant]
     Dosage: 1 MG, UNK
  3. VITAMIN D [Concomitant]
     Dosage: UNK
  4. METHOTREXATE [Concomitant]
     Dosage: 2.5 MG, UNK
  5. POTASSIUM [Concomitant]
     Dosage: 75 MG, UNK
  6. CALCIUM [Concomitant]
     Dosage: 600 MG, UNK
  7. ENBREL [Suspect]
     Indication: PRODUCT USED FOR UNKNOWN INDICATION
     Dosage: 50 MG, QWK
  8. AMBIEN CR [Concomitant]
     Dosage: 12.5 MG, UNK
  9. TRIAMTERENE AND HYDROCHLOROTHIAZIDE [Concomitant]
     Dosage: UNK

REACTIONS (2)
  - LABYRINTHITIS [None]
  - SINUSITIS [None]
